FAERS Safety Report 12643049 (Version 1)
Quarter: 2016Q3

REPORT INFORMATION
  Report Type: Spontaneous
  Country: US (occurrence: US)
  Receive Date: 20160811
  Receipt Date: 20160811
  Transmission Date: 20161109
  Serious: No
  Sender: FDA-Public Use
  Company Number: US-BEH-2016072061

PATIENT
  Age: 60 Year
  Sex: Female
  Weight: 102.4 kg

DRUGS (40)
  1. PREVACID [Concomitant]
     Active Substance: LANSOPRAZOLE
  2. HYDROXYZINE [Concomitant]
     Active Substance: HYDROXYZINE\HYDROXYZINE HYDROCHLORIDE
  3. SIMVASTATIN. [Concomitant]
     Active Substance: SIMVASTATIN
  4. SYMBICORT [Concomitant]
     Active Substance: BUDESONIDE\FORMOTEROL FUMARATE DIHYDRATE
  5. ALEVE [Concomitant]
     Active Substance: NAPROXEN SODIUM
  6. NEURONTIN [Concomitant]
     Active Substance: GABAPENTIN
  7. LANSOPRAZOLE. [Concomitant]
     Active Substance: LANSOPRAZOLE
  8. ZINC [Concomitant]
     Active Substance: ZINC\ZINC CHLORIDE
  9. HUMALOG [Concomitant]
     Active Substance: INSULIN LISPRO
  10. ASPIRIN. [Concomitant]
     Active Substance: ASPIRIN
  11. CRANBERRY                          /01512301/ [Concomitant]
     Active Substance: CRANBERRY
  12. L-LYSINE                           /00919901/ [Concomitant]
  13. FIORINAL [Concomitant]
     Active Substance: ASPIRIN\BUTALBITAL\CAFFEINE
  14. FLORANEX [Concomitant]
     Active Substance: LACTOBACILLUS ACIDOPHILUS\LACTOBACILLUS DELBRUECKII SUBSP. BULGARICUS
  15. ASTEPRO [Concomitant]
     Active Substance: AZELASTINE HYDROCHLORIDE
  16. SEROQUEL [Concomitant]
     Active Substance: QUETIAPINE FUMARATE
  17. LORAZEPAM. [Concomitant]
     Active Substance: LORAZEPAM
  18. LISINOPRIL. [Concomitant]
     Active Substance: LISINOPRIL
  19. LATUDA [Concomitant]
     Active Substance: LURASIDONE HYDROCHLORIDE
  20. NYSTATIN. [Concomitant]
     Active Substance: NYSTATIN
  21. OMEGA 3 FISH OIL                   /01334101/ [Concomitant]
     Active Substance: FISH OIL
  22. DIPHENHYDRAMINE. [Concomitant]
     Active Substance: DIPHENHYDRAMINE
  23. LEVOTHYROXINE. [Concomitant]
     Active Substance: LEVOTHYROXINE
  24. VITAMIN D                          /00107901/ [Concomitant]
     Active Substance: ERGOCALCIFEROL
  25. EPIPEN [Concomitant]
     Active Substance: EPINEPHRINE
  26. LANTUS [Concomitant]
     Active Substance: INSULIN GLARGINE
  27. CLOZAPINE. [Concomitant]
     Active Substance: CLOZAPINE
  28. CALCIUM [Concomitant]
     Active Substance: CALCIUM
  29. MIDODRINE [Concomitant]
     Active Substance: MIDODRINE
  30. UMECLIDINIUM [Concomitant]
     Active Substance: UMECLIDINIUM BROMIDE
  31. HYDROXYCHLOROQUINE [Concomitant]
     Active Substance: HYDROXYCHLOROQUINE
  32. KLONOPIN [Concomitant]
     Active Substance: CLONAZEPAM
  33. WITCH HAZEL. [Concomitant]
     Active Substance: WITCH HAZEL
  34. FERROUS GLUCONATE [Concomitant]
     Active Substance: FERROUS GLUCONATE
  35. MECLIZINE [Concomitant]
     Active Substance: MECLIZINE HYDROCHLORIDE
  36. HIZENTRA [Suspect]
     Active Substance: HUMAN IMMUNOGLOBULIN G
     Indication: IMMUNODEFICIENCY COMMON VARIABLE
     Dosage: 16 G, QW
     Route: 058
     Dates: start: 20110316
  37. REMERON [Concomitant]
     Active Substance: MIRTAZAPINE
  38. LITHIUM CARBONATE. [Concomitant]
     Active Substance: LITHIUM CARBONATE
  39. KEFLEX [Concomitant]
     Active Substance: CEPHALEXIN
  40. ALBUTEROL                          /00139501/ [Concomitant]
     Active Substance: ALBUTEROL

REACTIONS (1)
  - Herpes zoster [Unknown]

NARRATIVE: CASE EVENT DATE: 20160406
